FAERS Safety Report 12229439 (Version 1)
Quarter: 2016Q1

REPORT INFORMATION
  Report Type: Spontaneous
  Country: US (occurrence: None)
  Receive Date: 20160331
  Receipt Date: 20160331
  Transmission Date: 20160526
  Serious: Yes (Other)
  Sender: FDA-Public Use
  Company Number: None

PATIENT
  Age: 7 Year
  Sex: Female
  Weight: 26.31 kg

DRUGS (2)
  1. MIRALAX [Suspect]
     Active Substance: POLYETHYLENE GLYCOL 3350
     Indication: CONSTIPATION
     Dosage: 2 TEASPOON(S)
     Route: 048
     Dates: start: 20160301, end: 20160323
  2. CHEWABLE VITAMIN C [Concomitant]

REACTIONS (5)
  - Impulse-control disorder [None]
  - Excessive eye blinking [None]
  - Tic [None]
  - Compulsive cheek biting [None]
  - Obsessive-compulsive disorder [None]

NARRATIVE: CASE EVENT DATE: 20160323
